FAERS Safety Report 25961197 (Version 1)
Quarter: 2025Q4

REPORT INFORMATION
  Report Type: Spontaneous
  Country: CN (occurrence: CN)
  Receive Date: 20251027
  Receipt Date: 20251027
  Transmission Date: 20260118
  Serious: Yes (Hospitalization, Other)
  Sender: ABBVIE
  Company Number: CN-ABBVIE-6515723

PATIENT
  Age: 74 Year
  Sex: Female
  Weight: 59 kg

DRUGS (3)
  1. VENETOCLAX [Suspect]
     Active Substance: VENETOCLAX
     Indication: Neoplasm
     Dosage: 200 MILLIGRAM
     Route: 048
     Dates: start: 20250913, end: 20250926
  2. AZACITIDINE [Suspect]
     Active Substance: AZACITIDINE
     Indication: Neoplasm
     Dosage: 117 MILLIGRAM
     Route: 058
     Dates: start: 20250913, end: 20250919
  3. SORAFENIB [Suspect]
     Active Substance: SORAFENIB
     Indication: Targeted cancer therapy
     Dosage: 0.8 GRAM
     Route: 048
     Dates: start: 20250913, end: 20251022

REACTIONS (3)
  - White blood cell count decreased [Recovering/Resolving]
  - Neutrophil count decreased [Recovering/Resolving]
  - Myelosuppression [Recovering/Resolving]

NARRATIVE: CASE EVENT DATE: 20251008
